FAERS Safety Report 4803916-7 (Version None)
Quarter: 2005Q3

REPORT INFORMATION
  Report Type: 
  Country: None (occurrence: None)
  Receive Date: 20050920
  Receipt Date: 20050526
  Transmission Date: 20060218
  Serious: No
  Sender: FDA-Public Use
  Company Number: US-YAMANOUCHI-YPA20050288

PATIENT
  Age: 81 Year
  Sex: Female

DRUGS (9)
  1. VESICARE [Suspect]
     Dosage: 5 MG QD PO
     Route: 048
     Dates: start: 20050526
  2. FOSAMAX [Concomitant]
  3. NORVASC [Concomitant]
  4. ATENOLOL [Concomitant]
  5. NEXIUM [Concomitant]
  6. TRICOR [Concomitant]
  7. CQ10 [Concomitant]
  8. ACEON [Concomitant]
  9. METHADOSE [Concomitant]

REACTIONS (1)
  - MALAISE [None]
